FAERS Safety Report 7320886-0 (Version None)
Quarter: 2011Q1

REPORT INFORMATION
  Report Type: 
  Country: None (occurrence: None)
  Receive Date: 20110228
  Receipt Date: 20110218
  Transmission Date: 20110831
  Serious: Yes (Hospitalization, Other)
  Sender: FDA-Public Use
  Company Number: US-MERCK-1006USA01601

PATIENT
  Age: 74 Year
  Sex: Female

DRUGS (5)
  1. FOSAMAX PLUS D [Suspect]
     Route: 048
  2. FOSAMAX [Suspect]
     Indication: OSTEOPOROSIS
     Route: 048
     Dates: start: 19960101, end: 20000101
  3. ALENDRONATE SODIUM [Suspect]
     Route: 048
     Dates: start: 20080701, end: 20080901
  4. FOSAMAX [Suspect]
     Route: 048
     Dates: start: 20001101, end: 20081215
  5. CORTICOSTEROIDS (UNSPECIFIED) [Concomitant]
     Route: 065
     Dates: start: 20060101, end: 20060101

REACTIONS (16)
  - FEAR OF FALLING [None]
  - PANIC ATTACK [None]
  - FEAR OF DISEASE [None]
  - CONDITION AGGRAVATED [None]
  - TOOTH DISORDER [None]
  - SELF ESTEEM DECREASED [None]
  - FEMUR FRACTURE [None]
  - IRRITABLE BOWEL SYNDROME [None]
  - SKIN CANCER [None]
  - DENTAL CARIES [None]
  - DEPRESSION [None]
  - MULTIPLE INJURIES [None]
  - NEOPLASM RECURRENCE [None]
  - FEAR [None]
  - BACK DISORDER [None]
  - LOW TURNOVER OSTEOPATHY [None]
